FAERS Safety Report 13555539 (Version 2)
Quarter: 2017Q3

REPORT INFORMATION
  Report Type: Spontaneous
  Country: HU (occurrence: HU)
  Receive Date: 20170517
  Receipt Date: 20170804
  Transmission Date: 20171127
  Serious: Yes (Death, Hospitalization)
  Sender: FDA-Public Use
  Company Number: HU-JNJFOC-20170514882

PATIENT
  Age: 92 Year
  Sex: Female

DRUGS (7)
  1. DIHYDROXYALUMINUM SODIUM CARBONATE [Concomitant]
     Active Substance: DIHYDROXYALUMINUM SODIUM CARBONATE
     Dosage: 40 MG, OM
  2. XARELTO [Suspect]
     Active Substance: RIVAROXABAN
     Indication: CEREBROVASCULAR ACCIDENT PROPHYLAXIS
     Route: 048
     Dates: start: 20170303
  3. GLYCERYL TRINITRATE [Concomitant]
     Active Substance: NITROGLYCERIN
  4. CONCOR [Concomitant]
     Active Substance: BISOPROLOL FUMARATE
  5. XANAX [Concomitant]
     Active Substance: ALPRAZOLAM
  6. XARELTO [Suspect]
     Active Substance: RIVAROXABAN
     Indication: ATRIAL FIBRILLATION
     Route: 048
     Dates: start: 20170303
  7. DIGIMERCK [Concomitant]
     Active Substance: DIGITOXIN

REACTIONS (4)
  - Cerebral artery occlusion [Fatal]
  - Dyspnoea [Unknown]
  - Carotid artery stenosis [Fatal]
  - Ischaemic stroke [Fatal]

NARRATIVE: CASE EVENT DATE: 20170508
